FAERS Safety Report 15408325 (Version 2)
Quarter: 2018Q3

REPORT INFORMATION
  Report Type: Spontaneous
  Country: US (occurrence: US)
  Receive Date: 20180920
  Receipt Date: 20180927
  Transmission Date: 20181010
  Serious: Yes (Other)
  Sender: FDA-Public Use
  Company Number: US-SAOL THERAPEUTICS-2018SAO00994

PATIENT
  Age: 30 Year
  Sex: Male

DRUGS (2)
  1. LIORESAL [Suspect]
     Active Substance: BACLOFEN
     Dosage: 50 ?G, \DAY
     Route: 037
  2. LIORESAL [Suspect]
     Active Substance: BACLOFEN
     Dosage: 49.96 ?G, \DAY
     Route: 037

REACTIONS (2)
  - Implant site irritation [Recovered/Resolved]
  - Incision site erythema [Recovered/Resolved]

NARRATIVE: CASE EVENT DATE: 20180901
